FAERS Safety Report 4379873-7 (Version None)
Quarter: 2004Q2

REPORT INFORMATION
  Report Type: 
  Country: None (occurrence: None)
  Receive Date: 20040614
  Receipt Date: 20040527
  Transmission Date: 20050107
  Serious: Yes (Other)
  Sender: FDA-Public Use
  Company Number: 230004K04CAN

PATIENT
  Age: 29 Year
  Sex: Female
  Weight: 54 kg

DRUGS (8)
  1. REBIF (INTERFERON BETA) [Suspect]
     Indication: MULTIPLE SCLEROSIS
     Dosage: 44 MCG, 3 IN 1 WEEKS, SUBCUTANEOUS
     Route: 058
     Dates: start: 20040512, end: 20040519
  2. CYANOCOBALAMIN [Concomitant]
  3. NORMENSAL [Concomitant]
  4. ACETAMINOPHEN [Concomitant]
  5. LORAZEPAM [Concomitant]
  6. BENADRYL ALLERGY [Concomitant]
  7. SINGLET ^DOW^ [Concomitant]
  8. OXYBUTYNIN [Concomitant]

REACTIONS (4)
  - DRUG TOXICITY [None]
  - JAUNDICE [None]
  - RASH PRURITIC [None]
  - TRANSAMINASES INCREASED [None]
